FAERS Safety Report 18699616 (Version 1)
Quarter: 2021Q1

REPORT INFORMATION
  Report Type: Spontaneous
  Country: RO (occurrence: RO)
  Receive Date: 20210105
  Receipt Date: 20210105
  Transmission Date: 20210419
  Serious: Yes (Other)
  Sender: FDA-Public Use
  Company Number: RO-ACCORD-198616

PATIENT
  Age: 50 Year
  Sex: Female

DRUGS (5)
  1. CAPECITABINE. [Suspect]
     Active Substance: CAPECITABINE
     Indication: SOMATOSTATINOMA
     Dosage: ON DAYS 1?14
  2. TEMOZOLOMIDE. [Suspect]
     Active Substance: TEMOZOLOMIDE
     Indication: NEUROFIBROMATOSIS
     Dosage: ON DAYS 10?14 EVERY 28 DAYS?4 CYCLE
  3. CAPECITABINE. [Suspect]
     Active Substance: CAPECITABINE
     Indication: NEUROFIBROMATOSIS
     Dosage: ON DAYS 1?14 BID?4 CYCLE
  4. LANREOTIDE/LANREOTIDE ACETATE [Suspect]
     Active Substance: LANREOTIDE
     Indication: NEUROFIBROMATOSIS
     Dosage: EVERY 28 DAYS
  5. TEMOZOLOMIDE. [Suspect]
     Active Substance: TEMOZOLOMIDE
     Indication: SOMATOSTATINOMA
     Dosage: ON DAYS 10?14 EVERY 28 DAYS

REACTIONS (3)
  - Palmar-plantar erythrodysaesthesia syndrome [Unknown]
  - Thrombocytopenia [Unknown]
  - Off label use [Unknown]
